FAERS Safety Report 6245643-8 (Version None)
Quarter: 2009Q2

REPORT INFORMATION
  Report Type: 
  Country: None (occurrence: None)
  Receive Date: 20090625
  Receipt Date: 20090202
  Transmission Date: 20091009
  Serious: Yes (Other)
  Sender: FDA-Public Use
  Company Number: US-ASTRAZENECA-2009UW03273

PATIENT
  Age: 46 Year
  Sex: Female

DRUGS (1)
  1. ZOLADEX [Suspect]
     Dosage: 3.6 MG
     Route: 058

REACTIONS (2)
  - ABDOMINAL PAIN [None]
  - IMPLANT SITE HAEMATOMA [None]
